FAERS Safety Report 18712148 (Version 1)
Quarter: 2021Q1

REPORT INFORMATION
  Report Type: Spontaneous
  Country: US (occurrence: US)
  Receive Date: 20210107
  Receipt Date: 20210107
  Transmission Date: 20210419
  Serious: Yes (Death, Hospitalization)
  Sender: FDA-Public Use
  Company Number: US-ALVOGEN-2021-ALVOGEN-115785

PATIENT
  Age: 52 Year
  Sex: Female

DRUGS (8)
  1. LORAZEPAM. [Suspect]
     Active Substance: LORAZEPAM
     Indication: SUICIDE ATTEMPT
     Dosage: ROUTE OF ADMINISTRATION: INGST
  2. METOPROLOL. [Suspect]
     Active Substance: METOPROLOL
     Indication: SUICIDE ATTEMPT
     Dosage: ROUTE OF ADMINISTRATION: INGST
  3. HYDROXYZINE [Suspect]
     Active Substance: HYDROXYZINE HYDROCHLORIDE
     Indication: SUICIDE ATTEMPT
     Dosage: ROUTE OF ADMINISTRATION: INGST
  4. IRBESARTAN. [Suspect]
     Active Substance: IRBESARTAN
     Indication: SUICIDE ATTEMPT
     Dosage: ROUTE OF ADMINISTRATION: INGST
  5. ZOLPIDEM [Suspect]
     Active Substance: ZOLPIDEM TARTRATE
     Indication: SUICIDE ATTEMPT
     Dosage: ROUTE OF ADMINISTRATION: INGST
  6. GABAPENTIN. [Suspect]
     Active Substance: GABAPENTIN
     Indication: SUICIDE ATTEMPT
     Dosage: ROUTE OF ADMINISTRATION: INGST
  7. AMITRIPTYLINE [Suspect]
     Active Substance: AMITRIPTYLINE
     Indication: SUICIDE ATTEMPT
     Dosage: ROUTE OF ADMINISTRATION: INGST
  8. CITALOPRAM [Suspect]
     Active Substance: CITALOPRAM HYDROBROMIDE
     Indication: SUICIDE ATTEMPT
     Dosage: ROUTE OF ADMINISTRATION: INGST

REACTIONS (1)
  - Completed suicide [Fatal]
